FAERS Safety Report 13817839 (Version 1)
Quarter: 2017Q3

REPORT INFORMATION
  Report Type: Spontaneous
  Country: US (occurrence: US)
  Receive Date: 20170731
  Receipt Date: 20170731
  Transmission Date: 20171127
  Serious: No
  Sender: FDA-Public Use
  Company Number: US-ROCHE-695053

PATIENT
  Age: 50 Year
  Sex: Female

DRUGS (1)
  1. BONIVA [Suspect]
     Active Substance: IBANDRONATE SODIUM
     Indication: PRODUCT USED FOR UNKNOWN INDICATION
     Dosage: RECEIVED 4 DOSES.
     Route: 065

REACTIONS (4)
  - Mass [Unknown]
  - Incorrect route of drug administration [Unknown]
  - Injection site hypoaesthesia [Not Recovered/Not Resolved]
  - Injection site extravasation [Unknown]

NARRATIVE: CASE EVENT DATE: 20100324
